FAERS Safety Report 22020105 (Version 1)
Quarter: 2023Q1

REPORT INFORMATION
  Report Type: Spontaneous
  Country: US (occurrence: None)
  Receive Date: 20230217
  Receipt Date: 20230217
  Transmission Date: 20230418
  Serious: No
  Sender: FDA-Public Use
  Company Number: None

PATIENT
  Sex: 0

DRUGS (1)
  1. EMTRICITABINE\TENOFOVIR [Suspect]
     Active Substance: EMTRICITABINE\TENOFOVIR

REACTIONS (12)
  - Dizziness [None]
  - Tinnitus [None]
  - Nausea [None]
  - Flatulence [None]
  - Abdominal distension [None]
  - Decreased appetite [None]
  - Frequent bowel movements [None]
  - Rectal tenesmus [None]
  - Abdominal pain upper [None]
  - Dyspepsia [None]
  - Gastrooesophageal reflux disease [None]
  - Eructation [None]
